FAERS Safety Report 15593394 (Version 1)
Quarter: 2018Q4

REPORT INFORMATION
  Report Type: Spontaneous
  Country: US (occurrence: US)
  Receive Date: 20181107
  Receipt Date: 20181107
  Transmission Date: 20190205
  Serious: Yes (Death, Other)
  Sender: FDA-Public Use
  Company Number: US-MYLANLABS-2018M1083719

PATIENT
  Age: 58 Year
  Sex: Male

DRUGS (4)
  1. PREDNISONE TABLETS USP [Suspect]
     Active Substance: PREDNISONE
     Dosage: 20 MG, QD (EQUAL 40MG ONCE DAILY)
     Route: 048
     Dates: start: 20180531
  2. PREDNISONE TABLETS USP [Suspect]
     Active Substance: PREDNISONE
     Indication: GOUT
     Dosage: 60 MG, QD
     Route: 048
     Dates: start: 20180528, end: 20180528
  3. INDOMETACIN [Suspect]
     Active Substance: INDOMETHACIN
     Indication: PRODUCT USED FOR UNKNOWN INDICATION
     Dosage: TOOK 4 DAYS PRIOR TO PREDNISONE
     Dates: start: 201805
  4. COLCHICINE. [Suspect]
     Active Substance: COLCHICINE
     Indication: GOUT
     Dosage: UNK
     Dates: start: 20180528

REACTIONS (2)
  - Completed suicide [Fatal]
  - Psychotic disorder [Fatal]

NARRATIVE: CASE EVENT DATE: 20180609
